FAERS Safety Report 9013638 (Version 1)
Quarter: 2013Q1

REPORT INFORMATION
  Report Type: Spontaneous
  Country: US (occurrence: None)
  Receive Date: 20130109
  Receipt Date: 20130109
  Transmission Date: 20140127
  Serious: Yes (Hospitalization)
  Sender: FDA-Public Use
  Company Number: None

PATIENT
  Age: 63 Year
  Sex: Male
  Weight: 81.4 kg

DRUGS (1)
  1. MEPERIDINE [Suspect]
     Indication: PAIN
     Dosage: 50 MG ONCE IM
     Route: 030
     Dates: start: 20121023, end: 20121023

REACTIONS (1)
  - Grand mal convulsion [None]
